FAERS Safety Report 15044799 (Version 3)
Quarter: 2023Q1

REPORT INFORMATION
  Report Type: Report from Study
  Country: CN (occurrence: CN)
  Receive Date: 20180621
  Receipt Date: 20230315
  Transmission Date: 20230418
  Serious: Yes (Hospitalization)
  Sender: FDA-Public Use
  Company Number: CN-PFIZER INC-2018232021

PATIENT
  Age: 56 Year
  Sex: Female
  Weight: 75 kg

DRUGS (4)
  1. AROMASIN [Suspect]
     Active Substance: EXEMESTANE
     Indication: Invasive breast carcinoma
     Dosage: 25 MG, 1X/DAY
     Route: 048
     Dates: start: 20151118
  2. RESERPINE COMPOUND /00005801/ [Concomitant]
     Indication: Hypertension
     Dosage: 2 DF (2 TABLETS), 1X/DAY
     Route: 048
     Dates: start: 2009
  3. CALTRATE [Concomitant]
     Active Substance: CALCIUM CARBONATE
     Indication: Mineral supplementation
     Dosage: 1 DF (1 TABLET), 1X/DAY
     Route: 048
     Dates: start: 20160925
  4. ROCALTROL [Concomitant]
     Active Substance: CALCITRIOL
     Indication: Mineral supplementation
     Dosage: 0.25 UG, 2X/DAY
     Route: 048
     Dates: start: 20160925

REACTIONS (2)
  - Ischaemic cardiomyopathy [Recovered/Resolved]
  - Angina unstable [Recovered/Resolved]

NARRATIVE: CASE EVENT DATE: 20180427
